FAERS Safety Report 4440500-1 (Version None)
Quarter: 2004Q3

REPORT INFORMATION
  Report Type: 
  Country: None (occurrence: None)
  Receive Date: 20040728
  Receipt Date: 20040315
  Transmission Date: 20050211
  Serious: No
  Sender: FDA-Public Use
  Company Number: USA030946622

PATIENT
  Age: 7 Year
  Sex: Male
  Weight: 21 kg

DRUGS (2)
  1. STRATTERA [Suspect]
     Indication: ATTENTION DEFICIT/HYPERACTIVITY DISORDER
     Dosage: 18 MG/2 DAY
     Dates: start: 20030701
  2. ADVAIR DISKUS 100/50 [Concomitant]

REACTIONS (3)
  - DRUG EFFECT DECREASED [None]
  - IMPULSIVE BEHAVIOUR [None]
  - PRESCRIBED OVERDOSE [None]
